FAERS Safety Report 13786105 (Version 1)
Quarter: 2017Q3

REPORT INFORMATION
  Report Type: Spontaneous
  Country: GB (occurrence: GB)
  Receive Date: 20170725
  Receipt Date: 20170725
  Transmission Date: 20171127
  Serious: Yes (Other)
  Sender: FDA-Public Use
  Company Number: GB-TEVA-787419ACC

PATIENT
  Age: 59 Year
  Sex: Male

DRUGS (17)
  1. FOSFOMYCIN [Concomitant]
     Active Substance: FOSFOMYCIN
     Dosage: 24 GRAM DAILY;
     Route: 048
     Dates: start: 20161116
  2. CODEINE [Concomitant]
     Active Substance: CODEINE
  3. PARACETAMOL [Concomitant]
     Active Substance: ACETAMINOPHEN
     Dosage: 4 GRAM DAILY;
     Route: 048
  4. ATORVASTATIN [Concomitant]
     Active Substance: ATORVASTATIN
     Dosage: 40 MILLIGRAM DAILY;
  5. LINEZOLID. [Suspect]
     Active Substance: LINEZOLID
     Dosage: 1200 MILLIGRAM DAILY;
     Route: 042
     Dates: start: 20161016, end: 20161028
  6. ASPIRIN. [Concomitant]
     Active Substance: ASPIRIN
     Dates: end: 20161114
  7. LOSARTAN. [Concomitant]
     Active Substance: LOSARTAN
     Dosage: 100 MILLIGRAM DAILY;
     Route: 048
  8. METFORMIN [Concomitant]
     Active Substance: METFORMIN HYDROCHLORIDE
     Dosage: 3 GRAM DAILY;
     Route: 048
  9. LANSOPRAZOLE. [Concomitant]
     Active Substance: LANSOPRAZOLE
     Dosage: 15 MILLIGRAM DAILY;
     Route: 048
  10. HUMULIN M3 [Concomitant]
     Active Substance: INSULIN HUMAN
     Dosage: KWIKPEN
  11. DIGOXIN. [Concomitant]
     Active Substance: DIGOXIN
     Dosage: 62.5 MICROGRAM DAILY;
     Route: 048
     Dates: start: 20161116
  12. ATENOLOL. [Concomitant]
     Active Substance: ATENOLOL
     Dates: end: 20161114
  13. CHLORPHENAMINE [Concomitant]
     Active Substance: CHLORPHENIRAMINE MALEATE
     Dates: start: 20161110
  14. BISOPROLOL [Concomitant]
     Active Substance: BISOPROLOL
     Dosage: 15 MILLIGRAM DAILY;
  15. LINEZOLID. [Suspect]
     Active Substance: LINEZOLID
     Dosage: 1200 MILLIGRAM DAILY;
     Route: 048
     Dates: start: 20161110, end: 20161129
  16. HYDROXOCOBALAMIN [Concomitant]
     Active Substance: HYDROXOCOBALAMIN
     Route: 030
     Dates: start: 20161116
  17. LIXISENATIDE [Concomitant]
     Active Substance: LIXISENATIDE
     Dosage: 20 MICROGRAM DAILY;
     Route: 048

REACTIONS (2)
  - Streptococcal infection [Unknown]
  - Chromaturia [Not Recovered/Not Resolved]

NARRATIVE: CASE EVENT DATE: 20161028
